FAERS Safety Report 24434699 (Version 1)
Quarter: 2024Q4

REPORT INFORMATION
  Report Type: Spontaneous
  Country: PL (occurrence: PL)
  Receive Date: 20241014
  Receipt Date: 20241014
  Transmission Date: 20250115
  Serious: Yes (Hospitalization)
  Sender: NOVARTIS
  Company Number: PL-002147023-NVSC2024PL198208

PATIENT
  Age: 66 Year
  Sex: Male

DRUGS (1)
  1. NILOTINIB [Suspect]
     Active Substance: NILOTINIB
     Indication: Product used for unknown indication
     Dosage: UNK (2X2 TABLET)
     Route: 065
     Dates: start: 2022

REACTIONS (5)
  - Myelodysplastic syndrome [Unknown]
  - Dysplasia [Unknown]
  - Asthenia [Unknown]
  - Aortic valve stenosis [Unknown]
  - Laboratory test abnormal [Unknown]

NARRATIVE: CASE EVENT DATE: 20220401
